FAERS Safety Report 8276159-5 (Version None)
Quarter: 2012Q2

REPORT INFORMATION
  Report Type: 
  Country: None (occurrence: None)
  Receive Date: 20120412
  Receipt Date: 20120412
  Transmission Date: 20120825
  Serious: Yes (Hospitalization)
  Sender: FDA-Public Use
  Company Number: IT-JNJFOC-20120300528

PATIENT
  Sex: Male

DRUGS (5)
  1. ALCOHOL [Suspect]
     Indication: PRODUCT USED FOR UNKNOWN INDICATION
     Route: 065
  2. HALDOL [Suspect]
     Indication: SELF INJURIOUS BEHAVIOUR
     Route: 048
     Dates: start: 20120229, end: 20120229
  3. RISPERDAL [Concomitant]
     Indication: BIPOLAR DISORDER
     Route: 048
     Dates: start: 20100101, end: 20120229
  4. CITALOPRAM [Concomitant]
     Indication: BIPOLAR DISORDER
     Route: 048
     Dates: start: 20100101, end: 20120229
  5. DELORAZEPAM [Concomitant]
     Indication: BIPOLAR DISORDER
     Route: 065
     Dates: start: 20100101, end: 20120229

REACTIONS (5)
  - BLOOD CREATINE PHOSPHOKINASE INCREASED [None]
  - SELF INJURIOUS BEHAVIOUR [None]
  - SOPOR [None]
  - HYPOTENSION [None]
  - MYOCLONUS [None]
